FAERS Safety Report 12252583 (Version 1)
Quarter: 2016Q2

REPORT INFORMATION
  Report Type: Other
  Country: KR (occurrence: KR)
  Receive Date: 20160411
  Receipt Date: 20160411
  Transmission Date: 20160815
  Serious: Yes (Hospitalization)
  Sender: FDA-Public Use
  Company Number: KR-PURDUE PHARMA-CAN-2016-0006579

PATIENT
  Age: 21 Year
  Sex: Female

DRUGS (4)
  1. HALOPERIDOL. [Interacting]
     Active Substance: HALOPERIDOL
     Indication: SCHIZOPHRENIA
     Dosage: 2.5 MG, SINGLE
     Route: 030
     Dates: start: 20141124, end: 20141124
  2. BLONANSERIN [Interacting]
     Active Substance: BLONANSERIN
     Indication: SCHIZOPHRENIA
     Dosage: 4 MG, DAILY
     Route: 065
  3. NON-PMN METHYLPHENIDATE HCL [Suspect]
     Active Substance: METHYLPHENIDATE HYDROCHLORIDE
     Indication: ATTENTION DEFICIT/HYPERACTIVITY DISORDER
     Dosage: 20 MG, UNK
     Route: 065
     Dates: start: 20131029, end: 20141124
  4. NON-PMN METHYLPHENIDATE HCL [Interacting]
     Active Substance: METHYLPHENIDATE HYDROCHLORIDE
     Dosage: 10 MG, UNK
     Route: 065
     Dates: start: 20130910, end: 20131029

REACTIONS (13)
  - Extrapyramidal disorder [Recovering/Resolving]
  - Excessive eye blinking [Recovering/Resolving]
  - Dyskinesia [Recovering/Resolving]
  - Drug interaction [Recovering/Resolving]
  - Grimacing [Recovering/Resolving]
  - Social avoidant behaviour [Unknown]
  - Schizophrenia [Recovering/Resolving]
  - Parkinsonism [Recovering/Resolving]
  - Soliloquy [Recovering/Resolving]
  - Catatonia [Recovering/Resolving]
  - Persecutory delusion [Recovering/Resolving]
  - Hallucination, auditory [Recovering/Resolving]
  - Indifference [Unknown]

NARRATIVE: CASE EVENT DATE: 201410
